FAERS Safety Report 5693582-3 (Version None)
Quarter: 2008Q2

REPORT INFORMATION
  Report Type: 
  Country: None (occurrence: None)
  Receive Date: 20080401
  Receipt Date: 20080401
  Transmission Date: 20081010
  Serious: Yes (Hospitalization)
  Sender: FDA-Public Use
  Company Number: None

PATIENT
  Age: 75 Year
  Sex: Male
  Weight: 67.13 kg

DRUGS (2)
  1. CISPLATIN [Suspect]
     Indication: NON-SMALL CELL LUNG CANCER
     Dosage: 68MG IV
     Route: 042
     Dates: start: 20080114, end: 20080114
  2. ETOPOSIDE [Suspect]
     Indication: NON-SMALL CELL LUNG CANCER
     Dosage: 180MG  IV
     Route: 042
     Dates: start: 20080114, end: 20080114

REACTIONS (7)
  - ASTHENIA [None]
  - BONE MARROW FAILURE [None]
  - FATIGUE [None]
  - HAEMATOMA [None]
  - INFUSION SITE IRRITATION [None]
  - PANCYTOPENIA [None]
  - PRODUCTIVE COUGH [None]
